FAERS Safety Report 4801168-5 (Version None)
Quarter: 2005Q4

REPORT INFORMATION
  Report Type: 
  Country: None (occurrence: None)
  Receive Date: 20051011
  Receipt Date: 20040713
  Transmission Date: 20060501
  Serious: Yes (Other)
  Sender: FDA-Public Use
  Company Number: CHNY2004AU02867

PATIENT
  Age: 37 Year
  Sex: Female

DRUGS (1)
  1. NICOTINE [Suspect]
     Dosage: TRANSDERMAL
     Route: 062
     Dates: start: 20040625, end: 20040626

REACTIONS (1)
  - ANAPHYLACTIC REACTION [None]
